FAERS Safety Report 4372374-1 (Version None)
Quarter: 2004Q2

REPORT INFORMATION
  Report Type: 
  Country: None (occurrence: None)
  Receive Date: 20040602
  Receipt Date: 20040521
  Transmission Date: 20050107
  Serious: Yes (Death, Hospitalization, Other)
  Sender: FDA-Public Use
  Company Number: 04-161-0092-1

PATIENT
  Age: 62 Year
  Sex: Male

DRUGS (1)
  1. DOXORUBICIN, BEN VENUE LABS [Suspect]
     Indication: HEPATIC NEOPLASM MALIGNANT
     Dosage: 60 MG/M^2 IV X1
     Route: 042
     Dates: start: 20040329, end: 20040329

REACTIONS (7)
  - FEBRILE NEUTROPENIA [None]
  - HEPATIC ENCEPHALOPATHY [None]
  - HEPATIC NEOPLASM MALIGNANT [None]
  - MALIGNANT NEOPLASM PROGRESSION [None]
  - PERFORMANCE STATUS DECREASED [None]
  - RENAL FAILURE ACUTE [None]
  - SKIN LESION [None]
